FAERS Safety Report 10233224 (Version 2)
Quarter: 2014Q3

REPORT INFORMATION
  Report Type: Spontaneous
  Country: US (occurrence: US)
  Receive Date: 20140612
  Receipt Date: 20140715
  Transmission Date: 20150326
  Serious: No
  Sender: FDA-Public Use
  Company Number: US-PFIZER INC-2014157575

PATIENT
  Age: 73 Year
  Sex: Female
  Weight: 65.76 kg

DRUGS (1)
  1. LYRICA [Suspect]
     Active Substance: PREGABALIN
     Indication: BACK PAIN
     Dosage: 50 MG, UNK

REACTIONS (2)
  - Myalgia [Unknown]
  - Neuralgia [Unknown]
